FAERS Safety Report 17849177 (Version 1)
Quarter: 2020Q2

REPORT INFORMATION
  Report Type: Spontaneous
  Country: US (occurrence: US)
  Receive Date: 20200602
  Receipt Date: 20200602
  Transmission Date: 20200714
  Serious: Yes (Hospitalization)
  Sender: FDA-Public Use
  Company Number: US-GW PHARMA-202005USGW01935

PATIENT

DRUGS (1)
  1. EPIDIOLEX [Suspect]
     Active Substance: CANNABIDIOL
     Indication: PRODUCT USED FOR UNKNOWN INDICATION
     Dosage: 17.5 MG/KG, 140 MILLIGRAM, BID
     Route: 048
     Dates: start: 20190726

REACTIONS (2)
  - Gastrointestinal infection [Not Recovered/Not Resolved]
  - Cardiac disorder [Not Recovered/Not Resolved]
